FAERS Safety Report 20452981 (Version 1)
Quarter: 2022Q1

REPORT INFORMATION
  Report Type: Spontaneous
  Country: US (occurrence: None)
  Receive Date: 20220210
  Receipt Date: 20220210
  Transmission Date: 20220423
  Serious: No
  Sender: FDA-Public Use
  Company Number: US-ALM-HQ-US-2021-1215

PATIENT
  Age: 29 Year
  Sex: Male

DRUGS (1)
  1. TIRBANIBULIN [Suspect]
     Active Substance: TIRBANIBULIN
     Indication: Squamous cell carcinoma
     Route: 061

REACTIONS (2)
  - Off label use [Recovered/Resolved]
  - Application site exfoliation [Recovered/Resolved]
